FAERS Safety Report 11112874 (Version 1)
Quarter: 2015Q2

REPORT INFORMATION
  Report Type: Spontaneous
  Country: US (occurrence: None)
  Receive Date: 20150504
  Receipt Date: 20150504
  Transmission Date: 20150821
  Serious: Yes (Hospitalization)
  Sender: FDA-Public Use
  Company Number: 1352971

PATIENT
  Sex: Male
  Weight: 74.39 kg

DRUGS (2)
  1. XELODA [Concomitant]
     Active Substance: CAPECITABINE
  2. AVASTIN [Suspect]
     Active Substance: BEVACIZUMAB
     Indication: PRODUCT USED FOR UNKNOWN INDICATION

REACTIONS (2)
  - Full blood count decreased [None]
  - Diarrhoea [None]
